FAERS Safety Report 19674346 (Version 1)
Quarter: 2021Q3

REPORT INFORMATION
  Report Type: Spontaneous
  Country: US (occurrence: US)
  Receive Date: 20210809
  Receipt Date: 20210809
  Transmission Date: 20211014
  Serious: Yes (Disabling)
  Sender: FDA-Public Use
  Company Number: None

PATIENT
  Age: 69 Year
  Sex: Male
  Weight: 80.1 kg

DRUGS (5)
  1. PROTONOX GENERIC PROTONOX [Concomitant]
     Active Substance: PANTOPRAZOLE SODIUM
  2. AVASTIN [Suspect]
     Active Substance: BEVACIZUMAB
     Indication: VEIN DISORDER
     Route: 047
     Dates: start: 20190920, end: 20200717
  3. JANUMET [Concomitant]
     Active Substance: METFORMIN HYDROCHLORIDE\SITAGLIPTIN PHOSPHATE
  4. DAILY VITAMIN [Concomitant]
     Active Substance: VITAMINS
  5. LANTUS [Concomitant]
     Active Substance: INSULIN GLARGINE

REACTIONS (4)
  - Endophthalmitis [None]
  - Retinal detachment [None]
  - Blindness unilateral [None]
  - Streptococcal infection [None]

NARRATIVE: CASE EVENT DATE: 20200717
